FAERS Safety Report 4341484-7 (Version None)
Quarter: 2004Q2

REPORT INFORMATION
  Report Type: 
  Country: None (occurrence: None)
  Receive Date: 20040415
  Receipt Date: 20040405
  Transmission Date: 20050107
  Serious: Yes (Death)
  Sender: FDA-Public Use
  Company Number: 200403598

PATIENT
  Age: 55 Year
  Sex: Male

DRUGS (2)
  1. TYLENOL [Suspect]
  2. BEER [Suspect]

REACTIONS (4)
  - ALCOHOL USE [None]
  - HEPATIC FAILURE [None]
  - MULTI-ORGAN DISORDER [None]
  - OVERDOSE [None]
